FAERS Safety Report 23111965 (Version 3)
Quarter: 2023Q4

REPORT INFORMATION
  Report Type: Spontaneous
  Country: CA (occurrence: CA)
  Receive Date: 20231026
  Receipt Date: 20231221
  Transmission Date: 20240109
  Serious: Yes (Other)
  Sender: FDA-Public Use
  Company Number: CA-PFIZER INC-202300342123

PATIENT
  Age: 58 Year
  Sex: Female

DRUGS (9)
  1. RUXIENCE [Suspect]
     Active Substance: RITUXIMAB-PVVR
     Indication: Rheumatoid arthritis
     Dosage: 1000 MG DAY 1 AND DAY 15
     Route: 042
     Dates: start: 20211018
  2. RUXIENCE [Suspect]
     Active Substance: RITUXIMAB-PVVR
     Dosage: 1000 MG DAY 1 AND DAY 15
     Route: 042
     Dates: start: 20220510
  3. RUXIENCE [Suspect]
     Active Substance: RITUXIMAB-PVVR
     Dosage: 1000 MG DAY 1 AND DAY 15
     Route: 042
     Dates: start: 20221214
  4. RUXIENCE [Suspect]
     Active Substance: RITUXIMAB-PVVR
     Dosage: 1000 MG
     Route: 042
     Dates: start: 20230629
  5. FOLIC ACID [Concomitant]
     Active Substance: FOLIC ACID
  6. DEXILANT SOLUTAB [Concomitant]
     Active Substance: DEXLANSOPRAZOLE
  7. SEROQUEL [Concomitant]
     Active Substance: QUETIAPINE FUMARATE
  8. METHOTREXATE ACCORD HEALTHCARE [Concomitant]
     Dosage: 12500 UG EVERY SUNDAY
  9. CELECOXIB [Concomitant]
     Active Substance: CELECOXIB

REACTIONS (1)
  - Neoplasm malignant [Not Recovered/Not Resolved]
